FAERS Safety Report 8043516-1 (Version None)
Quarter: 2012Q1

REPORT INFORMATION
  Report Type: 
  Country: None (occurrence: None)
  Receive Date: 20120112
  Receipt Date: 20111228
  Transmission Date: 20120608
  Serious: Yes (Death, Other)
  Sender: FDA-Public Use
  Company Number: US-PFIZER INC-2011310288

PATIENT
  Age: 56 Year
  Sex: Female

DRUGS (7)
  1. HYDROXYZINE [Suspect]
     Dosage: UNK
     Route: 048
  2. ESCITALOPRAM [Suspect]
     Dosage: UNK
     Route: 048
  3. VENLAFAXINE HCL [Suspect]
     Dosage: UNK
     Route: 048
  4. CITALOPRAM [Suspect]
     Dosage: UNK
     Route: 048
  5. ETHANOL [Suspect]
     Dosage: UNK
     Route: 048
  6. LAMOTRIGINE [Suspect]
     Dosage: UNK
     Route: 048
  7. ATENOLOL [Suspect]
     Dosage: UNK
     Route: 048

REACTIONS (4)
  - RESPIRATORY ARREST [None]
  - COMPLETED SUICIDE [None]
  - CARDIAC ARREST [None]
  - TOXICITY TO VARIOUS AGENTS [None]
